FAERS Safety Report 9973264 (Version 1)
Quarter: 2014Q1

REPORT INFORMATION
  Report Type: Spontaneous
  Country: US (occurrence: None)
  Receive Date: 20140131
  Receipt Date: 20140131
  Transmission Date: 20141002
  Serious: Yes (Hospitalization)
  Sender: FDA-Public Use
  Company Number: 089020

PATIENT
  Sex: Female
  Weight: 11.3 kg

DRUGS (2)
  1. KEPPRA [Suspect]
     Dates: start: 20130604
  2. CLONIDINE (CLONIDINE) [Concomitant]

REACTIONS (8)
  - Convulsion [None]
  - Petit mal epilepsy [None]
  - Myoclonic epilepsy [None]
  - Fatigue [None]
  - Balance disorder [None]
  - Irritability [None]
  - Anticonvulsant drug level decreased [None]
  - Product quality issue [None]
